FAERS Safety Report 13045553 (Version 1)
Quarter: 2016Q4

REPORT INFORMATION
  Report Type: Report from Study
  Country: BR (occurrence: BR)
  Receive Date: 20161220
  Receipt Date: 20161220
  Transmission Date: 20170207
  Serious: Yes (Other)
  Sender: FDA-Public Use
  Company Number: BR-BAYER-2016-135993

PATIENT
  Age: 59 Year
  Sex: Male

DRUGS (5)
  1. PARACETAMOL [Concomitant]
     Active Substance: ACETAMINOPHEN
     Indication: PAIN
     Dosage: UNK
  2. NEXAVAR [Suspect]
     Active Substance: SORAFENIB
     Indication: HEPATIC CANCER
     Dosage: 400 MG, HS
     Route: 048
  3. NEXAVAR [Suspect]
     Active Substance: SORAFENIB
     Indication: HEPATIC CANCER
     Dosage: 2 TABLETS (400 MG) PER DAY, HS
     Route: 048
     Dates: start: 201608
  4. LACTULONA [Concomitant]
     Indication: CONSTIPATION
     Dosage: 1 SPOON/QD, PRN
     Dates: start: 201607
  5. NEXAVAR [Suspect]
     Active Substance: SORAFENIB
     Indication: HEPATIC CANCER
     Dosage: 400 MG, BID
     Route: 048
     Dates: start: 20160630, end: 2016

REACTIONS (5)
  - Skin atrophy [Recovering/Resolving]
  - Gait disturbance [Recovered/Resolved]
  - Pain in extremity [Recovered/Resolved]
  - Blister [Not Recovered/Not Resolved]
  - Blister [Recovered/Resolved]

NARRATIVE: CASE EVENT DATE: 2016
